FAERS Safety Report 24188445 (Version 1)
Quarter: 2024Q3

REPORT INFORMATION
  Report Type: Spontaneous
  Country: US (occurrence: None)
  Receive Date: 20240807
  Receipt Date: 20240807
  Transmission Date: 20241016
  Serious: No
  Sender: Public
  Company Number: None

PATIENT

DRUGS (3)
  1. VALTREX [Suspect]
     Active Substance: VALACYCLOVIR HYDROCHLORIDE
  2. VALTREX [Suspect]
     Active Substance: VALACYCLOVIR HYDROCHLORIDE
  3. VALTREX [Suspect]
     Active Substance: VALACYCLOVIR HYDROCHLORIDE

REACTIONS (2)
  - Incorrect dose administered [None]
  - Product dispensing error [None]
